FAERS Safety Report 6410233-0 (Version None)
Quarter: 2009Q4

REPORT INFORMATION
  Report Type: 
  Country: None (occurrence: None)
  Receive Date: 20091022
  Receipt Date: 20091014
  Transmission Date: 20100525
  Serious: Yes (Life-Threatening, Hospitalization, Other)
  Sender: FDA-Public Use
  Company Number: PHHY2009DE44512

PATIENT
  Age: 84 Year
  Sex: Male

DRUGS (6)
  1. LOCOL [Suspect]
     Indication: HYPERLIPIDAEMIA
     Dosage: 40 MG/DAY
     Route: 048
     Dates: start: 20010601, end: 20090718
  2. DIOVAN HCT [Interacting]
     Indication: HYPERTENSION
     Dosage: 0.5 TAB/DAY
     Route: 048
     Dates: start: 20090122, end: 20090718
  3. ACETYLSALICYLIC ACID [Concomitant]
     Indication: ISCHAEMIC HEART DISEASE PROPHYLAXIS
     Dosage: 100 MG/DAY
     Route: 048
     Dates: start: 20070101
  4. ALFUZOSIN HCL [Concomitant]
     Indication: BENIGN PROSTATIC HYPERPLASIA
     Dosage: 10 MG/DAY
     Route: 048
     Dates: start: 20080301
  5. BICANORM [Concomitant]
     Indication: METABOLIC ACIDOSIS
     Dosage: 1 G, TID
     Route: 048
     Dates: start: 20070101
  6. EINSALPHA [Concomitant]
     Indication: RENAL FAILURE CHRONIC
     Dosage: 0.5 UG/DAY
     Route: 048
     Dates: start: 20080401

REACTIONS (31)
  - ALANINE AMINOTRANSFERASE INCREASED [None]
  - ASPARTATE AMINOTRANSFERASE INCREASED [None]
  - ASTHENIA [None]
  - BLOOD CALCIUM DECREASED [None]
  - BLOOD CREATINE PHOSPHOKINASE INCREASED [None]
  - BLOOD CREATINE PHOSPHOKINASE MB [None]
  - BLOOD CREATININE INCREASED [None]
  - BLOOD LACTATE DEHYDROGENASE INCREASED [None]
  - BLOOD UREA INCREASED [None]
  - BUNDLE BRANCH BLOCK RIGHT [None]
  - C-REACTIVE PROTEIN INCREASED [None]
  - CREATININE RENAL CLEARANCE DECREASED [None]
  - DIARRHOEA [None]
  - DISTURBANCE IN ATTENTION [None]
  - DRUG INTERACTION [None]
  - FALL [None]
  - GENERAL PHYSICAL HEALTH DETERIORATION [None]
  - HAEMATOCRIT DECREASED [None]
  - HAEMOGLOBIN DECREASED [None]
  - HAPTOGLOBIN INCREASED [None]
  - HEART RATE INCREASED [None]
  - MOVEMENT DISORDER [None]
  - MUSCULAR WEAKNESS [None]
  - MYALGIA [None]
  - MYOGLOBIN BLOOD INCREASED [None]
  - MYOPATHY [None]
  - PLATELET COUNT DECREASED [None]
  - RENAL FAILURE [None]
  - RHABDOMYOLYSIS [None]
  - TROPONIN T INCREASED [None]
  - URINARY TRACT INFECTION [None]
